FAERS Safety Report 5090939-9 (Version None)
Quarter: 2006Q3

REPORT INFORMATION
  Report Type: 
  Country: None (occurrence: None)
  Receive Date: 20060823
  Receipt Date: 20060814
  Transmission Date: 20061208
  Serious: Yes (Death, Hospitalization)
  Sender: FDA-Public Use
  Company Number: CLOF-10203

PATIENT
  Age: 77 Year
  Sex: Female

DRUGS (2)
  1. CLOFARABINE [Suspect]
     Indication: ACUTE MYELOID LEUKAEMIA
     Dosage: 30 MG/M2 QD X 5 IV
     Route: 042
     Dates: start: 20040101, end: 20040101
  2. CYTARABINE [Suspect]
     Indication: ACUTE MYELOID LEUKAEMIA
     Dosage: 100 MG/M2 QD IV
     Route: 042
     Dates: start: 20040101, end: 20040101

REACTIONS (9)
  - APLASIA [None]
  - CANDIDIASIS [None]
  - CAPILLARY LEAK SYNDROME [None]
  - FUNGAEMIA [None]
  - HYPOTENSION [None]
  - OPPORTUNISTIC INFECTION [None]
  - PLEURAL EFFUSION [None]
  - PULMONARY OEDEMA [None]
  - RESPIRATORY FAILURE [None]
